FAERS Safety Report 8474478-0 (Version None)
Quarter: 2012Q2

REPORT INFORMATION
  Report Type: 
  Country: None (occurrence: None)
  Receive Date: 20120628
  Receipt Date: 20120625
  Transmission Date: 20120825
  Serious: Yes (Hospitalization)
  Sender: FDA-Public Use
  Company Number: PHHO2012DE003062

PATIENT
  Sex: Male
  Weight: 75.5 kg

DRUGS (3)
  1. ASPIRIN [Concomitant]
  2. MYCOPHENOLIC ACID [Suspect]
     Indication: RENAL TRANSPLANT
     Dosage: 540 MG, BID
     Route: 048
     Dates: start: 20110827
  3. TACROLIMUS [Concomitant]
     Dosage: 5 MG, UNK
     Route: 048
     Dates: start: 20110831

REACTIONS (1)
  - HAEMATOMA [None]
